FAERS Safety Report 9438860 (Version 1)
Quarter: 2013Q3

REPORT INFORMATION
  Report Type: Spontaneous
  Country: ES (occurrence: ES)
  Receive Date: 20130802
  Receipt Date: 20130802
  Transmission Date: 20140515
  Serious: Yes (Death)
  Sender: FDA-Public Use
  Company Number: ES-ABBOTT-13P-144-1128962-00

PATIENT
  Sex: 0

DRUGS (2)
  1. CICLOSPORINE [Suspect]
     Indication: COLITIS ULCERATIVE
  2. CORTICOSTEROIDS [Concomitant]
     Indication: PRODUCT USED FOR UNKNOWN INDICATION

REACTIONS (1)
  - Adverse drug reaction [Fatal]
